FAERS Safety Report 19139284 (Version 1)
Quarter: 2021Q2

REPORT INFORMATION
  Report Type: Spontaneous
  Country: US (occurrence: US)
  Receive Date: 20210415
  Receipt Date: 20210415
  Transmission Date: 20210717
  Serious: Yes (Hospitalization)
  Sender: FDA-Public Use
  Company Number: None

PATIENT
  Age: 12 Year
  Sex: Male
  Weight: 69.7 kg

DRUGS (5)
  1. DAUNORUBICIN [Suspect]
     Active Substance: DAUNORUBICIN
     Dates: end: 20210402
  2. GLEEVEC [Suspect]
     Active Substance: IMATINIB MESYLATE
     Indication: BLOOD BILIRUBIN INCREASED
     Dates: end: 20210408
  3. METHOTREXATE. [Suspect]
     Active Substance: METHOTREXATE
     Dates: end: 20210409
  4. PREDNISONE. [Suspect]
     Active Substance: PREDNISONE
     Dates: end: 20210408
  5. VINCRISTINE SULFATE. [Suspect]
     Active Substance: VINCRISTINE SULFATE
     Dates: end: 20210402

REACTIONS (11)
  - Liver injury [None]
  - Blood fibrinogen decreased [None]
  - Hypotension [None]
  - Transaminases increased [None]
  - Blood bilirubin increased [None]
  - Laboratory test abnormal [None]
  - Disseminated intravascular coagulation [None]
  - Hepatic steatosis [None]
  - Hypertriglyceridaemia [None]
  - Hepatomegaly [None]
  - Chronic lymphocytic leukaemia [None]

NARRATIVE: CASE EVENT DATE: 20210409
